FAERS Safety Report 15873706 (Version 1)
Quarter: 2019Q1

REPORT INFORMATION
  Report Type: Spontaneous
  Country: US (occurrence: US)
  Receive Date: 20190126
  Receipt Date: 20190126
  Transmission Date: 20190417
  Serious: No
  Sender: FDA-Public Use
  Company Number: US-ACORDA-ACO_150605_2018

PATIENT
  Sex: Female
  Weight: 59 kg

DRUGS (4)
  1. AMPYRA [Suspect]
     Active Substance: DALFAMPRIDINE
     Indication: MULTIPLE SCLEROSIS
     Dosage: 10 MG, BID
     Route: 048
  2. DALFAMPRIDINE. [Suspect]
     Active Substance: DALFAMPRIDINE
     Indication: MULTIPLE SCLEROSIS
     Dosage: BID
     Dates: start: 20180928, end: 20180928
  3. VITAMIN D3 [Concomitant]
     Active Substance: CHOLECALCIFEROL
     Indication: PRODUCT USED FOR UNKNOWN INDICATION
  4. LEVOTHYROXINE. [Concomitant]
     Active Substance: LEVOTHYROXINE
     Indication: THYROID DISORDER
     Dosage: 88 MICROGRAM, QD
     Route: 065

REACTIONS (9)
  - Asthenia [Recovered/Resolved]
  - Emotional distress [Recovered/Resolved]
  - Fear [Recovered/Resolved]
  - Discomfort [Recovered/Resolved]
  - Insomnia [Recovered/Resolved]
  - Therapy cessation [Unknown]
  - Fatigue [Recovered/Resolved]
  - Urinary incontinence [Recovered/Resolved]
  - Balance disorder [Recovered/Resolved]
